FAERS Safety Report 5479554-2 (Version None)
Quarter: 2007Q3

REPORT INFORMATION
  Report Type: 
  Country: None (occurrence: None)
  Receive Date: 20070913
  Receipt Date: 20070201
  Transmission Date: 20080115
  Serious: Yes (Other)
  Sender: FDA-Public Use
  Company Number: PHEH2007US01368

PATIENT
  Age: 54 Year
  Sex: Female

DRUGS (4)
  1. DIOVAN [Suspect]
     Indication: HYPERTENSION
     Dosage: 160 MG, BID; 320 MG, QD; 160 MG, QD;
     Dates: end: 20070108
  2. DIOVAN [Suspect]
     Indication: HYPERTENSION
     Dosage: 160 MG, BID; 320 MG, QD; 160 MG, QD;
     Dates: start: 20070108, end: 20070125
  3. DIOVAN [Suspect]
     Indication: HYPERTENSION
     Dosage: 160 MG, BID; 320 MG, QD; 160 MG, QD;
     Dates: start: 20070126
  4. COREG [Suspect]
     Indication: HYPERTENSION
     Dosage: 12.5 MG, BID
     Dates: start: 20070108

REACTIONS (3)
  - BALANCE DISORDER [None]
  - HEADACHE [None]
  - HYPERTENSION [None]
